FAERS Safety Report 4924764-3 (Version None)
Quarter: 2006Q1

REPORT INFORMATION
  Report Type: 
  Country: None (occurrence: None)
  Receive Date: 20060227
  Receipt Date: 20050628
  Transmission Date: 20060701
  Serious: Yes (Hospitalization)
  Sender: FDA-Public Use
  Company Number: US-MERCK-0506USA03985

PATIENT
  Age: 80 Year
  Sex: Male
  Weight: 82 kg

DRUGS (12)
  1. VIOXX [Suspect]
     Indication: ARTHRALGIA
     Route: 048
     Dates: start: 20011009, end: 20040901
  2. VIOXX [Suspect]
     Indication: ARTHRITIS
     Route: 048
     Dates: start: 20011009, end: 20040901
  3. TOPROL-XL [Concomitant]
     Route: 048
  4. PLAVIX [Concomitant]
     Route: 048
  5. NORVASC [Concomitant]
     Route: 048
  6. ASPIRIN [Concomitant]
     Route: 048
  7. ZOCOR [Concomitant]
     Route: 048
  8. IMDUR [Concomitant]
     Route: 048
  9. PRINIVIL [Concomitant]
     Route: 048
  10. NEXIUM [Concomitant]
     Route: 048
  11. FLOMAX [Concomitant]
     Route: 048
  12. TYLENOL (CAPLET) [Concomitant]
     Route: 065

REACTIONS (7)
  - ARTHROPATHY [None]
  - BRAIN DAMAGE [None]
  - CARDIAC DISORDER [None]
  - CEREBROVASCULAR ACCIDENT [None]
  - CORONARY ARTERY DISEASE [None]
  - MULTI-ORGAN DISORDER [None]
  - TRANSIENT ISCHAEMIC ATTACK [None]
